FAERS Safety Report 4980817-5 (Version None)
Quarter: 2006Q2

REPORT INFORMATION
  Report Type: 
  Country: None (occurrence: None)
  Receive Date: 20060424
  Receipt Date: 20060117
  Transmission Date: 20061013
  Serious: Yes (Hospitalization, Disabling)
  Sender: FDA-Public Use
  Company Number: US-MERCK-0601USA02250

PATIENT
  Age: 75 Year
  Sex: Male
  Weight: 83 kg

DRUGS (26)
  1. VIOXX [Suspect]
     Indication: OSTEOARTHRITIS
     Route: 048
     Dates: start: 20020917, end: 20040801
  2. VIOXX [Suspect]
     Route: 048
     Dates: end: 20040915
  3. AMITRIPTYLINE HYDROCHLORIDE [Concomitant]
     Route: 048
  4. ZYRTEC [Concomitant]
     Route: 048
  5. FOLIC ACID [Concomitant]
     Route: 048
  6. ACIPHEX [Concomitant]
     Route: 048
  7. HYDROCODONE HYDROCHLORIDE [Concomitant]
     Route: 048
  8. MISOPROSTOL [Concomitant]
     Route: 048
  9. ASPIRIN [Concomitant]
     Route: 048
  10. GUAIFENESIN [Concomitant]
     Route: 048
  11. [THERAPY UNSPECIFIED] [Concomitant]
     Route: 055
  12. METFORMIN [Concomitant]
     Route: 048
  13. CENTRUM SILVER [Concomitant]
     Route: 065
  14. ECHINACEA (UNSPECIFIED) [Concomitant]
     Route: 065
  15. SAW PALMETTO [Concomitant]
     Route: 065
  16. CHONDROITIN SULFATE SODIUM AND GLUCOSAMINE SULFATE [Concomitant]
     Route: 065
  17. GARLIC [Concomitant]
     Route: 065
  18. NIACIN [Concomitant]
     Route: 065
  19. CHROMIC CHLORIDE [Concomitant]
     Route: 065
  20. CALCIUM (UNSPECIFIED) [Concomitant]
     Route: 065
  21. CYANOCOBALAMIN [Concomitant]
     Route: 065
  22. HISTINEX D [Concomitant]
     Route: 065
  23. FORADIL [Concomitant]
     Route: 065
  24. AMOXICILLIN [Concomitant]
     Route: 065
  25. ALPRAZOLAM [Concomitant]
     Route: 065
  26. ALTACE [Concomitant]
     Route: 065

REACTIONS (14)
  - ACUTE MYOCARDIAL INFARCTION [None]
  - ATRIAL FLUTTER [None]
  - ATRIOVENTRICULAR BLOCK [None]
  - ATRIOVENTRICULAR BLOCK COMPLETE [None]
  - BLOOD CHOLESTEROL INCREASED [None]
  - BRADYCARDIA [None]
  - CARDIAC FAILURE CONGESTIVE [None]
  - CARDIOGENIC SHOCK [None]
  - CHRONIC OBSTRUCTIVE PULMONARY DISEASE [None]
  - CORONARY ARTERY OCCLUSION [None]
  - DIABETES MELLITUS NON-INSULIN-DEPENDENT [None]
  - GRAFT THROMBOSIS [None]
  - HYPERTENSION [None]
  - RHEUMATOID ARTHRITIS [None]
